FAERS Safety Report 7357477-1 (Version None)
Quarter: 2011Q1

REPORT INFORMATION
  Report Type: 
  Country: None (occurrence: None)
  Receive Date: 20110317
  Receipt Date: 20101208
  Transmission Date: 20110831
  Serious: Yes (Hospitalization, Other)
  Sender: FDA-Public Use
  Company Number: US-BAYER-201021250NA

PATIENT
  Sex: Female
  Weight: 61.364 kg

DRUGS (5)
  1. YASMIN [Suspect]
     Route: 048
     Dates: start: 19900101, end: 20030515
  2. LIPITOR [Concomitant]
     Indication: BLOOD CHOLESTEROL INCREASED
     Dates: start: 20030101
  3. MOTRIN [Concomitant]
     Indication: PAIN MANAGEMENT
  4. YAZ [Suspect]
     Route: 048
     Dates: start: 20070401, end: 20071215
  5. ANTIBIOTICS [Concomitant]
     Dosage: PERIODICALLY

REACTIONS (3)
  - DEEP VEIN THROMBOSIS [None]
  - PULMONARY EMBOLISM [None]
  - THROMBOSIS [None]
